FAERS Safety Report 20016268 (Version 1)
Quarter: 2021Q4

REPORT INFORMATION
  Report Type: Spontaneous
  Country: US (occurrence: None)
  Receive Date: 20211103
  Receipt Date: 20211103
  Transmission Date: 20220303
  Serious: Yes (Other)
  Sender: FDA-Public Use
  Company Number: None

PATIENT
  Age: 51 Year
  Sex: Female
  Weight: 153 kg

DRUGS (3)
  1. CASIRIVIMAB\IMDEVIMAB [Suspect]
     Active Substance: CASIRIVIMAB\IMDEVIMAB
     Indication: COVID-19
     Dates: start: 20211020, end: 20211020
  2. Tylenol 650mg PO [Concomitant]
     Dates: start: 20211020, end: 20211020
  3. Benadryl 50mg PO [Concomitant]
     Dates: start: 20211020, end: 20211020

REACTIONS (3)
  - Dyspnoea [None]
  - Paraesthesia oral [None]
  - Hypersensitivity [None]

NARRATIVE: CASE EVENT DATE: 20211020
